FAERS Safety Report 9576389 (Version 1)
Quarter: 2013Q4

REPORT INFORMATION
  Report Type: Spontaneous
  Country: US (occurrence: US)
  Receive Date: 20131001
  Receipt Date: 20131001
  Transmission Date: 20140711
  Serious: No
  Sender: FDA-Public Use
  Company Number: US-AMGEN-USASP2013002360

PATIENT
  Age: 55 Year
  Sex: Female

DRUGS (3)
  1. ENBREL [Suspect]
     Indication: ANKYLOSING SPONDYLITIS
     Dosage: 50 MG, QWK
     Dates: start: 20121028, end: 201212
  2. OMNICEF                            /00497602/ [Concomitant]
     Dosage: UNK
  3. CLEOCIN                            /00166002/ [Concomitant]
     Dosage: UNK

REACTIONS (9)
  - Rash [Recovered/Resolved]
  - Rash papular [Recovered/Resolved]
  - Injection site mass [Recovered/Resolved]
  - Urticaria [Recovered/Resolved]
  - Sinusitis [Recovered/Resolved]
  - Injection site reaction [Recovered/Resolved]
  - Injection site warmth [Recovered/Resolved]
  - Injection site swelling [Recovered/Resolved]
  - Injection site pain [Recovered/Resolved]
